FAERS Safety Report 8581934-3 (Version None)
Quarter: 2012Q3

REPORT INFORMATION
  Report Type: 
  Country: None (occurrence: None)
  Receive Date: 20120727
  Receipt Date: 20120713
  Transmission Date: 20120928
  Serious: Yes (Other)
  Sender: FDA-Public Use
  Company Number: CIP11002941

PATIENT
  Age: 55 Year
  Sex: Male
  Weight: 56.4 kg

DRUGS (9)
  1. ACTONEL [Suspect]
     Indication: OSTEOPOROSIS PROPHYLAXIS
     Dosage: 35 MG ONCE WEEKLY, ORAL
     Route: 048
     Dates: start: 20030201
  2. NEOMYCIN (NEOMYCIN) [Concomitant]
  3. LIPITOR [Concomitant]
  4. CALTRATE + D /00944201/ (CALCIUM CARBONATE, COLECALCIFEROL) [Concomitant]
  5. PREDNISONE TAB [Concomitant]
  6. OXYCODONE/ACETAMINOPHEN (OXYCODONE HYDROCHLORIDE, PARACETAMOL) [Concomitant]
  7. ZOCOR [Concomitant]
  8. PYRIDOSTIGMINE (PYRIDOSTIGMINE) [Concomitant]
  9. RANITIDINE HYDROCHLORIDE [Concomitant]

REACTIONS (6)
  - FRACTURE NONUNION [None]
  - FALL [None]
  - FEMUR FRACTURE [None]
  - STRESS FRACTURE [None]
  - FRACTURE DELAYED UNION [None]
  - OSTEOGENESIS IMPERFECTA [None]
